FAERS Safety Report 6235006-3 (Version None)
Quarter: 2009Q2

REPORT INFORMATION
  Report Type: 
  Country: None (occurrence: None)
  Receive Date: 20090615
  Receipt Date: 20090602
  Transmission Date: 20091009
  Serious: Yes (Hospitalization)
  Sender: FDA-Public Use
  Company Number: HQWYE404112APR07

PATIENT
  Age: 45 Year
  Sex: Male

DRUGS (25)
  1. MYLOTARG [Suspect]
     Indication: ACUTE MYELOID LEUKAEMIA
     Dosage: 9 MG/M^2 1X PER 1 DAY INTRAVENOUS DRIP ; 9 MG/M^2 1X PER 1 DAY INTRAVENOUS DRIP
     Route: 041
     Dates: start: 20061027, end: 20061027
  2. MYLOTARG [Suspect]
     Indication: ACUTE MYELOID LEUKAEMIA
     Dosage: 9 MG/M^2 1X PER 1 DAY INTRAVENOUS DRIP ; 9 MG/M^2 1X PER 1 DAY INTRAVENOUS DRIP
     Route: 041
     Dates: start: 20061110, end: 20061110
  3. CYTARABINE [Suspect]
     Indication: ACUTE MYELOID LEUKAEMIA
     Dosage: INTRAVENOUS
     Route: 042
     Dates: start: 20061011, end: 20061015
  4. ETOPOSIDE [Suspect]
     Indication: ACUTE MYELOID LEUKAEMIA
     Dosage: INTRAVENOUS
     Route: 042
     Dates: start: 20061011, end: 20061015
  5. NOVANTRONE [Suspect]
     Indication: ACUTE MYELOID LEUKAEMIA
     Dosage: INTRAVENOUS
     Route: 042
     Dates: start: 20061011, end: 20061015
  6. VANCOMYCIN [Concomitant]
  7. HEPARIN SODIUM [Concomitant]
  8. SODIUM BICARBONATE [Concomitant]
  9. HUMULIN R [Concomitant]
  10. NEORAL [Concomitant]
  11. ENTERONON (LACTOBACILLUS ACIDOPHILUS) [Concomitant]
  12. FAMOTIDINE [Concomitant]
  13. ITRACONAZOLE [Concomitant]
  14. FUNGIZONE [Concomitant]
  15. ZYVOX [Concomitant]
  16. FUNGUARD (MICAFUNGIN SODIUM) [Concomitant]
  17. CEFTAZIDIME [Concomitant]
  18. VFEND [Concomitant]
  19. MAXIPIME (CEFEIPIME HYDROCHLORIDE) [Concomitant]
  20. AZACTAM [Concomitant]
  21. TIENAM (CILASTATIN/IMIPENEM) [Concomitant]
  22. HABEKACIN (ARBEKACIN) [Concomitant]
  23. URSO (URSODEOXYCHOLIC ACID) [Concomitant]
  24. CIPROFLOXACIN HCL [Concomitant]
  25. ZOLPIDEM TARTRATE [Concomitant]

REACTIONS (6)
  - CHILLS [None]
  - FEBRILE NEUTROPENIA [None]
  - INSOMNIA [None]
  - PANCYTOPENIA [None]
  - PSEUDOMEMBRANOUS COLITIS [None]
  - PYREXIA [None]
